FAERS Safety Report 5050303-5 (Version None)
Quarter: 2006Q3

REPORT INFORMATION
  Report Type: 
  Country: None (occurrence: None)
  Receive Date: 20060713
  Receipt Date: 20060704
  Transmission Date: 20061208
  Serious: Yes (Hospitalization)
  Sender: FDA-Public Use
  Company Number: 2006CG01154

PATIENT
  Age: 17 Year
  Sex: Female

DRUGS (4)
  1. ZOMIG [Suspect]
     Route: 048
  2. TARDYFERON [Suspect]
     Route: 048
  3. MAGNE B6 [Suspect]
     Dosage: THREE BLISTERS ONCE
     Route: 048
  4. PERIDYS [Concomitant]

REACTIONS (6)
  - BLOOD IRON DECREASED [None]
  - BLOOD IRON INCREASED [None]
  - INTENTIONAL OVERDOSE [None]
  - NAUSEA [None]
  - SUICIDE ATTEMPT [None]
  - VOMITING [None]
